FAERS Safety Report 17508741 (Version 1)
Quarter: 2020Q1

REPORT INFORMATION
  Report Type: Spontaneous
  Country: US (occurrence: US)
  Receive Date: 20200306
  Receipt Date: 20200306
  Transmission Date: 20200409
  Serious: Yes (Other)
  Sender: FDA-Public Use
  Company Number: US-PFIZER INC-2020096606

PATIENT
  Age: 81 Year
  Sex: Female
  Weight: 68.4 kg

DRUGS (1)
  1. COLESTID [Suspect]
     Active Substance: COLESTIPOL HYDROCHLORIDE
     Dosage: 2 G, DAILY

REACTIONS (6)
  - Product size issue [Unknown]
  - Hypertension [Unknown]
  - Swelling [Unknown]
  - Meningioma [Unknown]
  - Intentional product use issue [Unknown]
  - Peripheral swelling [Unknown]

NARRATIVE: CASE EVENT DATE: 201906
